FAERS Safety Report 5613795-6 (Version None)
Quarter: 2008Q1

REPORT INFORMATION
  Report Type: 
  Country: None (occurrence: None)
  Receive Date: 20080130
  Receipt Date: 20080118
  Transmission Date: 20080703
  Serious: Yes (Hospitalization, Other)
  Sender: FDA-Public Use
  Company Number: 2007US000882

PATIENT
  Age: 30 Year
  Sex: Female
  Weight: 95.2 kg

DRUGS (12)
  1. AMEVIVE [Suspect]
     Indication: PSORIASIS
     Dosage: INTRAMUSCULAR
     Route: 030
     Dates: start: 20030916
  2. ALDOMET [Concomitant]
  3. IRON (IRON) [Concomitant]
  4. CALCIUM (ASCORBIC ACID) [Concomitant]
  5. FOLIC ACID [Concomitant]
  6. PRENATAL VITAMINS (ASCORBIC ACID, TOCOPHEROL, NICOTINIC ACID, MINERALS [Concomitant]
  7. ALDOMET [Concomitant]
  8. LABETALOL HCL [Concomitant]
  9. VASOTEC [Concomitant]
  10. NORVASC [Concomitant]
  11. CLOBESTALOL (CLOBESTALOL) CREAM [Concomitant]
  12. ASCORBIC ACID [Concomitant]

REACTIONS (9)
  - ANAEMIA [None]
  - ANXIETY [None]
  - CAESAREAN SECTION [None]
  - DRUG EXPOSURE DURING PREGNANCY [None]
  - HAEMORRHAGE [None]
  - HYPERTENSION [None]
  - OEDEMA [None]
  - PRE-ECLAMPSIA [None]
  - PREMATURE BABY [None]
